FAERS Safety Report 25178218 (Version 1)
Quarter: 2025Q2

REPORT INFORMATION
  Report Type: Spontaneous
  Country: US (occurrence: US)
  Receive Date: 20250409
  Receipt Date: 20250409
  Transmission Date: 20250717
  Serious: No
  Sender: BRISTOL MYERS SQUIBB
  Company Number: US-BRISTOL-MYERS SQUIBB COMPANY-2025-046134

PATIENT
  Age: 62 Year
  Sex: Female

DRUGS (7)
  1. ORENCIA [Suspect]
     Active Substance: ABATACEPT
     Indication: Rheumatoid arthritis
     Route: 058
     Dates: start: 202502
  2. ORENCIA [Suspect]
     Active Substance: ABATACEPT
     Indication: Essential hypertension
  3. ORENCIA [Suspect]
     Active Substance: ABATACEPT
     Indication: Hyperlipidaemia
  4. ORENCIA [Suspect]
     Active Substance: ABATACEPT
     Indication: Attention deficit hyperactivity disorder
  5. ORENCIA [Suspect]
     Active Substance: ABATACEPT
     Indication: Pain
  6. ORENCIA [Suspect]
     Active Substance: ABATACEPT
     Indication: Asthma
  7. ENBREL [Concomitant]
     Active Substance: ETANERCEPT
     Indication: Product used for unknown indication

REACTIONS (1)
  - Injection site discharge [Unknown]
